FAERS Safety Report 5537997-2 (Version None)
Quarter: 2007Q4

REPORT INFORMATION
  Report Type: 
  Country: None (occurrence: None)
  Receive Date: 20071207
  Receipt Date: 20071127
  Transmission Date: 20080405
  Serious: Yes (Other)
  Sender: FDA-Public Use
  Company Number: US-PFIZER INC-2007100380

PATIENT
  Sex: Male
  Weight: 68 kg

DRUGS (4)
  1. VIAGRA [Suspect]
     Indication: ERECTILE DYSFUNCTION
     Route: 048
  2. PROTONIX [Concomitant]
  3. MONTELUKAST SODIUM [Concomitant]
  4. VITAMINS [Concomitant]

REACTIONS (1)
  - VISUAL DISTURBANCE [None]
